FAERS Safety Report 8500218-2 (Version None)
Quarter: 2012Q3

REPORT INFORMATION
  Report Type: 
  Country: None (occurrence: None)
  Receive Date: 20120710
  Receipt Date: 20120705
  Transmission Date: 20120928
  Serious: No
  Sender: FDA-Public Use
  Company Number: US-TEVA-346727USA

PATIENT
  Sex: Female
  Weight: 70.37 kg

DRUGS (11)
  1. LIPITOR [Concomitant]
     Indication: BLOOD CHOLESTEROL ABNORMAL
     Dosage: 10 MILLIGRAM;
     Route: 048
  2. SOMA [Concomitant]
     Indication: BACK PAIN
     Dosage: PRN
     Route: 048
  3. DICLOFENAC SODIUM [Concomitant]
     Indication: ARTHRITIS
     Dosage: 100 MILLIGRAM;
     Route: 048
  4. NUVIGIL [Suspect]
     Indication: SOMNOLENCE
  5. PROTONIX [Concomitant]
     Indication: GASTROOESOPHAGEAL REFLUX DISEASE
     Dosage: 40 MILLIGRAM;
     Route: 048
  6. CYMBALTA [Concomitant]
     Indication: FIBROMYALGIA
     Dosage: 60 MILLIGRAM;
     Route: 048
  7. SOMA [Concomitant]
     Indication: SLEEP DISORDER
  8. FEMHRT [Concomitant]
     Indication: HORMONE REPLACEMENT THERAPY
     Dosage: 1MG/5MCG
     Route: 048
  9. FIORICET [Concomitant]
     Indication: MIGRAINE
     Dosage: PRN
     Route: 048
  10. NUVIGIL [Suspect]
     Indication: FATIGUE
     Dosage: Q AM
     Route: 048
     Dates: start: 20120704
  11. ACYCLOVIR [Concomitant]
     Indication: ORAL HERPES
     Dosage: 800 MILLIGRAM;
     Route: 048

REACTIONS (4)
  - DRUG EFFECT INCREASED [None]
  - INSOMNIA [None]
  - HEADACHE [None]
  - OFF LABEL USE [None]
